FAERS Safety Report 13883577 (Version 1)
Quarter: 2017Q3

REPORT INFORMATION
  Report Type: Spontaneous
  Country: GB (occurrence: GB)
  Receive Date: 20170819
  Receipt Date: 20170819
  Transmission Date: 20171127
  Serious: Yes (Death, Other)
  Sender: FDA-Public Use
  Company Number: GB-ACCORD-057243

PATIENT
  Age: 21 Year
  Sex: Male
  Weight: 73 kg

DRUGS (1)
  1. SERTRALINE [Suspect]
     Active Substance: SERTRALINE HYDROCHLORIDE
     Indication: DEPRESSION
     Dosage: 50MG OR 100 MG DAILY
     Route: 048
     Dates: end: 20161103

REACTIONS (3)
  - Ketoacidosis [Not Recovered/Not Resolved]
  - Death [Fatal]
  - Antidepressant drug level increased [Not Recovered/Not Resolved]

NARRATIVE: CASE EVENT DATE: 20161103
